FAERS Safety Report 7782290-0 (Version None)
Quarter: 2011Q3

REPORT INFORMATION
  Report Type: 
  Country: None (occurrence: None)
  Receive Date: 20110927
  Receipt Date: 20110914
  Transmission Date: 20111222
  Serious: Yes (Other)
  Sender: FDA-Public Use
  Company Number: CA-ELI_LILLY_AND_COMPANY-CA201109003707

PATIENT
  Sex: Female

DRUGS (5)
  1. ZYPREXA [Suspect]
     Dosage: 7.5 MG, EACH EVENING
  2. ATIVAN [Concomitant]
  3. ZYPREXA [Suspect]
     Indication: SCHIZOAFFECTIVE DISORDER
     Dosage: 10 MG, EACH EVENING
     Dates: start: 20001125
  4. DIVALPROEX SODIUM [Concomitant]
  5. ZYPREXA [Suspect]
     Dosage: 5 MG, EACH EVENING

REACTIONS (9)
  - WEIGHT INCREASED [None]
  - HYPERCHOLESTEROLAEMIA [None]
  - DIABETES MELLITUS [None]
  - POLYNEUROPATHY [None]
  - ATRIAL FIBRILLATION [None]
  - PNEUMONIA [None]
  - HYPERGLYCAEMIA [None]
  - BLOOD TRIGLYCERIDES INCREASED [None]
  - HYPERTENSION [None]
